FAERS Safety Report 5192714-3 (Version None)
Quarter: 2006Q4

REPORT INFORMATION
  Report Type: 
  Country: None (occurrence: None)
  Receive Date: 20061228
  Receipt Date: 20061219
  Transmission Date: 20070319
  Serious: Yes (Other)
  Sender: FDA-Public Use
  Company Number: PHHO2006JP21685

PATIENT
  Age: 50 Year
  Sex: Male

DRUGS (2)
  1. DIOVAN [Suspect]
     Indication: HYPERTENSION
     Dosage: 80 MG/DAILY
     Route: 048
     Dates: start: 20030606, end: 20050916
  2. NORVASC [Suspect]
     Dates: start: 20030418, end: 20050916

REACTIONS (4)
  - ANAEMIA MACROCYTIC [None]
  - DIZZINESS POSTURAL [None]
  - HYPERCHROMIC ANAEMIA [None]
  - VITAMIN B12 DEFICIENCY [None]
